FAERS Safety Report 16640688 (Version 1)
Quarter: 2019Q3

REPORT INFORMATION
  Report Type: Spontaneous
  Country: US (occurrence: US)
  Receive Date: 20190729
  Receipt Date: 20190729
  Transmission Date: 20191004
  Serious: No
  Sender: FDA-Public Use
  Company Number: US-STRIDES ARCOLAB LIMITED-2019SP000480

PATIENT
  Age: 24 Year
  Sex: Female

DRUGS (4)
  1. ASPIRIN                            /00002701/ [Concomitant]
     Active Substance: ASPIRIN
     Indication: PRODUCT USED FOR UNKNOWN INDICATION
     Dosage: LOW-DOSE
     Route: 065
  2. MYCOPHENOLATE MOFETIL. [Suspect]
     Active Substance: MYCOPHENOLATE MOFETIL
     Indication: SUSAC^S SYNDROME
     Dosage: UNK
     Route: 065
  3. ETONOGESTREL [Concomitant]
     Active Substance: ETONOGESTREL
     Indication: PRODUCT USED FOR UNKNOWN INDICATION
     Dosage: IMPLANT
     Route: 065
  4. RITUXIMAB. [Concomitant]
     Active Substance: RITUXIMAB
     Indication: SUSAC^S SYNDROME
     Dosage: ADMINISTERED AT 1-WEEK INTERVALS
     Route: 065

REACTIONS (2)
  - Off label use [Unknown]
  - Myalgia [Unknown]
